FAERS Safety Report 5110103-4 (Version None)
Quarter: 2006Q3

REPORT INFORMATION
  Report Type: 
  Country: None (occurrence: None)
  Receive Date: 20060731
  Receipt Date: 20060627
  Transmission Date: 20061208
  Serious: No
  Sender: FDA-Public Use
  Company Number: 2006PV016557

PATIENT
  Sex: Female

DRUGS (20)
  1. BYETTA [Suspect]
     Indication: DIABETES MELLITUS NON-INSULIN-DEPENDENT
     Dosage: SEE IMAGE
     Route: 058
     Dates: start: 20060401, end: 20060501
  2. BYETTA [Suspect]
     Indication: DIABETES MELLITUS NON-INSULIN-DEPENDENT
     Dosage: SEE IMAGE
     Route: 058
     Dates: start: 20060501
  3. BYETTA [Suspect]
     Indication: DIABETES MELLITUS NON-INSULIN-DEPENDENT
     Dosage: SEE IMAGE
     Route: 058
     Dates: start: 20060501
  4. BYETTA [Suspect]
  5. BYETTA [Suspect]
  6. LANTUS [Concomitant]
  7. AMARYL [Concomitant]
  8. GLUCOPHAGE [Concomitant]
  9. AVAPRO [Concomitant]
  10. CALAN - SLOW RELEASE [Concomitant]
  11. ZOCOR [Concomitant]
  12. ZETIA [Concomitant]
  13. SYNTHROID [Concomitant]
  14. LASIX [Concomitant]
  15. SPIRONOLACTONE [Concomitant]
  16. COUMADIN [Concomitant]
  17. LANOXIN [Concomitant]
  18. TRUSOPT [Concomitant]
  19. PRED FORTE [Concomitant]
  20. ISOPTO HOMATROPINE [Concomitant]

REACTIONS (8)
  - ABDOMINAL PAIN [None]
  - DEFAECATION URGENCY [None]
  - ERUCTATION [None]
  - FEELING COLD [None]
  - FEELING JITTERY [None]
  - INJECTION SITE IRRITATION [None]
  - NERVOUSNESS [None]
  - WEIGHT DECREASED [None]
